FAERS Safety Report 9344509 (Version 2)
Quarter: 2013Q3

REPORT INFORMATION
  Report Type: Report from Study
  Country: JP (occurrence: JP)
  Receive Date: 20130612
  Receipt Date: 20130711
  Transmission Date: 20140515
  Serious: Yes (Hospitalization)
  Sender: FDA-Public Use
  Company Number: JP-ELI_LILLY_AND_COMPANY-JP201304008650

PATIENT
  Age: 85 Year
  Sex: Female

DRUGS (1)
  1. TERIPARATIDE [Suspect]
     Dosage: UNK
     Route: 058
     Dates: end: 201305

REACTIONS (4)
  - Asthma [Recovering/Resolving]
  - Pneumonia [Recovering/Resolving]
  - Fatigue [Not Recovered/Not Resolved]
  - Malaise [Unknown]
